FAERS Safety Report 8180751-6 (Version None)
Quarter: 2012Q1

REPORT INFORMATION
  Report Type: 
  Country: None (occurrence: None)
  Receive Date: 20120302
  Receipt Date: 20120213
  Transmission Date: 20120608
  Serious: Yes (Other)
  Sender: FDA-Public Use
  Company Number: GB-ROCHE-1039710

PATIENT
  Sex: Male
  Weight: 75.2 kg

DRUGS (6)
  1. ACETAMINOPHEN [Concomitant]
     Dosage: 161
     Dates: start: 20101008
  2. DIPROBASE [Concomitant]
     Dosage: APPLICATION
     Dates: start: 20101124
  3. ROFERON-A [Suspect]
     Dosage: 3MIU
     Dates: start: 20110923
  4. AVASTIN [Suspect]
     Indication: RENAL CANCER
  5. AMLODIPINE [Concomitant]
     Dates: start: 20100903
  6. ROFERON-A [Suspect]
     Indication: RENAL CANCER
     Dosage: 9 MIU
     Route: 058
     Dates: end: 20110912

REACTIONS (1)
  - SKIN INFECTION [None]
